FAERS Safety Report 10004438 (Version 1)
Quarter: 2014Q1

REPORT INFORMATION
  Report Type: Spontaneous
  Country: US (occurrence: US)
  Receive Date: 20140312
  Receipt Date: 20140312
  Transmission Date: 20141002
  Serious: No
  Sender: FDA-Public Use
  Company Number: US-009507513-2012SP035888

PATIENT
  Age: 5 Year
  Sex: Male
  Weight: 22.68 kg

DRUGS (2)
  1. CLARITIN CHEWABLE TABLETS [Suspect]
     Indication: HYPERSENSITIVITY
     Dosage: 5 MG, QAM
     Route: 048
  2. CLARITIN CHEWABLE TABLETS [Suspect]
     Dosage: 15 MG, ONCE
     Route: 048
     Dates: start: 20120508

REACTIONS (1)
  - Overdose [Recovered/Resolved]
